FAERS Safety Report 25475696 (Version 4)
Quarter: 2025Q3

REPORT INFORMATION
  Report Type: Spontaneous
  Country: EU (occurrence: EU)
  Receive Date: 20250624
  Receipt Date: 20250716
  Transmission Date: 20251021
  Serious: Yes (Hospitalization, Other)
  Sender: BOEHRINGER INGELHEIM
  Company Number: EU-Pharmaand-2025000761

PATIENT
  Age: 59 Year
  Sex: Female

DRUGS (4)
  1. TIOTROPIUM BROMIDE [Suspect]
     Active Substance: TIOTROPIUM BROMIDE
     Indication: Product used for unknown indication
  2. THEOPHYLLINE [Suspect]
     Active Substance: THEOPHYLLINE
     Indication: Product used for unknown indication
  3. CLONAZEPAM [Concomitant]
     Active Substance: CLONAZEPAM
     Indication: Product used for unknown indication
  4. combined tramadol/paracetamol 75 mg/650 mg [Concomitant]
     Indication: Product used for unknown indication

REACTIONS (10)
  - Toxicity to various agents [Recovering/Resolving]
  - Tremor [Unknown]
  - Vomiting [Recovering/Resolving]
  - Haematemesis [Recovering/Resolving]
  - Blood pressure decreased [Unknown]
  - Sinus tachycardia [Recovered/Resolved]
  - Hypokalaemia [Recovered/Resolved]
  - Hyponatraemia [Unknown]
  - Agitation [Unknown]
  - Overdose [Recovering/Resolving]
